FAERS Safety Report 9951832 (Version 1)
Quarter: 2014Q1

REPORT INFORMATION
  Report Type: Spontaneous
  Country: CN (occurrence: CN)
  Receive Date: 20140304
  Receipt Date: 20140304
  Transmission Date: 20141002
  Serious: Yes (Death, Other)
  Sender: FDA-Public Use
  Company Number: CN-CELGENEUS-035-21660-14022810

PATIENT
  Sex: 0

DRUGS (4)
  1. ABRAXANE [Suspect]
     Indication: NON-SMALL CELL LUNG CANCER
     Dosage: 125 MILLIGRAM/SQ. METER
     Route: 041
  2. S-1 [Concomitant]
     Indication: NON-SMALL CELL LUNG CANCER
     Dosage: 80 MILLIGRAM
     Route: 048
  3. S-1 [Concomitant]
     Dosage: 100 MILLIGRAM
     Route: 048
  4. S-1 [Concomitant]
     Dosage: 120 MILLIGRAM
     Route: 048

REACTIONS (12)
  - Death [Fatal]
  - Bone marrow failure [Recovered/Resolved]
  - Liver disorder [Unknown]
  - Leukopenia [Unknown]
  - Thrombocytopenia [Unknown]
  - Non-small cell lung cancer [Unknown]
  - Alopecia [Unknown]
  - Neurotoxicity [Unknown]
  - Nausea [Unknown]
  - Vomiting [Unknown]
  - Mouth ulceration [Unknown]
  - Rash [Unknown]
